FAERS Safety Report 23533520 (Version 1)
Quarter: 2024Q1

REPORT INFORMATION
  Report Type: Spontaneous
  Country: US (occurrence: None)
  Receive Date: 20240216
  Receipt Date: 20240216
  Transmission Date: 20240410
  Serious: Yes (Other)
  Sender: FDA-Public Use
  Company Number: None

PATIENT
  Age: 48 Year
  Sex: Female
  Weight: 72 kg

DRUGS (1)
  1. ESTRADIOL TRANSDERMAL SYSTEM [Suspect]
     Active Substance: ESTRADIOL
     Indication: Menopause
     Dates: start: 20240205, end: 20240210

REACTIONS (5)
  - Application site pain [None]
  - Application site pruritus [None]
  - Application site erythema [None]
  - Application site rash [None]
  - Application site mass [None]

NARRATIVE: CASE EVENT DATE: 20240207
